FAERS Safety Report 7968566-2 (Version None)
Quarter: 2011Q4

REPORT INFORMATION
  Report Type: 
  Country: None (occurrence: None)
  Receive Date: 20111122
  Receipt Date: 20110817
  Transmission Date: 20120403
  Serious: No
  Sender: FDA-Public Use
  Company Number: PHEH2011US01978

PATIENT
  Age: 49 Year
  Sex: Female
  Weight: 56.0192 kg

DRUGS (7)
  1. IBUPROFEN [Concomitant]
  2. GILENYA [Suspect]
     Indication: MULTIPLE SCLEROSIS RELAPSE
     Dosage: 0.5 MG, QD, ORAL
     Route: 048
     Dates: start: 20110629
  3. ZOLOFT [Concomitant]
  4. CLONAZEPAM [Concomitant]
  5. LORTAB [Concomitant]
  6. GABAPENTIN [Concomitant]
  7. BACLOFEN [Concomitant]

REACTIONS (1)
  - OEDEMA PERIPHERAL [None]
